FAERS Safety Report 5011298-3 (Version None)
Quarter: 2006Q2

REPORT INFORMATION
  Report Type: 
  Country: None (occurrence: None)
  Receive Date: 20060524
  Receipt Date: 20060511
  Transmission Date: 20061013
  Serious: Yes (Other)
  Sender: FDA-Public Use
  Company Number: ABALB-06-0243

PATIENT
  Sex: Female
  Weight: 68.4932 kg

DRUGS (10)
  1. ABRAXANE [Suspect]
     Indication: BREAST CANCER
     Dosage: WEEKLY, INTRAVENOUS DRIP
     Route: 041
     Dates: start: 20050501, end: 20050801
  2. PROZAC [Concomitant]
  3. CLARINEX [Concomitant]
  4. OMEPRAZOLE [Concomitant]
  5. NEXIUM [Concomitant]
  6. ADVAIR DISKUS 100/50 [Concomitant]
  7. SINGULAIR [Concomitant]
  8. ALBUTEROL [Concomitant]
  9. XANAX [Concomitant]
  10. HERCEPTIN [Concomitant]

REACTIONS (3)
  - CARDIAC DISORDER [None]
  - CONTUSION [None]
  - EJECTION FRACTION DECREASED [None]
